FAERS Safety Report 4855364-1 (Version None)
Quarter: 2005Q4

REPORT INFORMATION
  Report Type: 
  Country: None (occurrence: None)
  Receive Date: 20051125
  Receipt Date: 20050803
  Transmission Date: 20060501
  Serious: Yes (Other)
  Sender: FDA-Public Use
  Company Number: US-JNJFOC-20050801272

PATIENT
  Age: 12 Year
  Sex: Male
  Weight: 76.6579 kg

DRUGS (2)
  1. LEVAQUIN [Suspect]
     Indication: SKIN INFECTION
     Dosage: 500 MG, 1 IN 1 DAY, ORAL
     Route: 048
     Dates: start: 20050707, end: 20050714
  2. CLARITIN [Concomitant]

REACTIONS (1)
  - JOINT SWELLING [None]
